FAERS Safety Report 25598373 (Version 1)
Quarter: 2025Q3

REPORT INFORMATION
  Report Type: Spontaneous
  Country: AU (occurrence: AU)
  Receive Date: 20250723
  Receipt Date: 20250723
  Transmission Date: 20251020
  Serious: Yes (Other)
  Sender: ASCEND THERAPEUTICS US, LLC
  Company Number: AU-Ascend Therapeutics US, LLC-2181070

PATIENT
  Age: 50 Year
  Sex: Female

DRUGS (3)
  1. ESTROGEL [Suspect]
     Active Substance: ESTRADIOL
     Indication: Hormone replacement therapy
  2. ESTROGEL [Suspect]
     Active Substance: ESTRADIOL
  3. PROMETRIUM [Suspect]
     Active Substance: PROGESTERONE

REACTIONS (4)
  - Cerebrovascular accident [Unknown]
  - Headache [Unknown]
  - Transient ischaemic attack [Unknown]
  - Thrombosis [Unknown]
